FAERS Safety Report 11705134 (Version 2)
Quarter: 2016Q3

REPORT INFORMATION
  Report Type: Report from Study
  Country: US (occurrence: US)
  Receive Date: 20151106
  Receipt Date: 20160921
  Transmission Date: 20161109
  Serious: Yes (Hospitalization)
  Sender: FDA-Public Use
  Company Number: US-SA-2015SA177840

PATIENT
  Age: 36 Year
  Sex: Female

DRUGS (1)
  1. LEMTRADA [Suspect]
     Active Substance: ALEMTUZUMAB
     Indication: MULTIPLE SCLEROSIS
     Route: 041
     Dates: start: 20150831, end: 20150904

REACTIONS (9)
  - Haemoglobin decreased [Unknown]
  - Haematocrit decreased [Unknown]
  - Dysuria [Not Recovered/Not Resolved]
  - White blood cell count decreased [Unknown]
  - Urine abnormality [Not Recovered/Not Resolved]
  - Hepatic enzyme abnormal [Unknown]
  - Arthralgia [Unknown]
  - Pyrexia [Unknown]
  - Urinary tract infection [Not Recovered/Not Resolved]

NARRATIVE: CASE EVENT DATE: 2015
